FAERS Safety Report 4960837-7 (Version None)
Quarter: 2006Q1

REPORT INFORMATION
  Report Type: 
  Country: None (occurrence: None)
  Receive Date: 20060331
  Receipt Date: 20060331
  Transmission Date: 20060701
  Serious: Yes (Hospitalization)
  Sender: FDA-Public Use
  Company Number: None

PATIENT
  Sex: Female
  Weight: 52 kg

DRUGS (4)
  1. QUININE SULFATE [Suspect]
     Indication: RESTLESS LEGS SYNDROME
     Dosage: PO  ONE DOSE
     Route: 048
     Dates: start: 20060308
  2. MIACALCIN [Concomitant]
  3. FOSAMAX [Concomitant]
  4. CALCIUM PLUS D [Concomitant]

REACTIONS (9)
  - CHEST DISCOMFORT [None]
  - CHEST PAIN [None]
  - CHILLS [None]
  - DYSPNOEA [None]
  - INTERNATIONAL NORMALISED RATIO INCREASED [None]
  - NAUSEA [None]
  - PAIN [None]
  - PYREXIA [None]
  - VOMITING [None]
